FAERS Safety Report 8997166 (Version 2)
Quarter: 2013Q1

REPORT INFORMATION
  Report Type: Spontaneous
  Country: US (occurrence: US)
  Receive Date: 20130104
  Receipt Date: 20130122
  Transmission Date: 20140127
  Serious: Yes (Other)
  Sender: FDA-Public Use
  Company Number: US-PFIZER INC-2013002157

PATIENT
  Age: 54 Year
  Sex: Female
  Weight: 54.42 kg

DRUGS (5)
  1. ZOLOFT [Suspect]
     Indication: ANXIETY DISORDER
     Dosage: 150 MG, 1X/DAY
     Route: 048
  2. VALIUM [Concomitant]
     Indication: ANXIETY
     Dosage: 10 MG, 4X/DAY
  3. MINIPRESS [Concomitant]
     Indication: SLEEP TERROR
     Dosage: 2 MG, 1X/DAY
  4. MINIPRESS [Concomitant]
     Indication: POST-TRAUMATIC STRESS DISORDER
  5. SEROQUEL [Concomitant]
     Indication: ANXIETY
     Dosage: 150 MG, UNK

REACTIONS (5)
  - Mania [Unknown]
  - Logorrhoea [Unknown]
  - Tremor [Unknown]
  - Muscle twitching [Unknown]
  - Syncope [Unknown]
